FAERS Safety Report 16568514 (Version 2)
Quarter: 2019Q3

REPORT INFORMATION
  Report Type: Spontaneous
  Country: BR (occurrence: BR)
  Receive Date: 20190712
  Receipt Date: 20190827
  Transmission Date: 20191004
  Serious: Yes (Other)
  Sender: FDA-Public Use
  Company Number: PHHY2019BR160623

PATIENT
  Age: 33 Year
  Sex: Female
  Weight: 80 kg

DRUGS (5)
  1. ESCITALOPRAM [Suspect]
     Active Substance: ESCITALOPRAM OXALATE
     Indication: DEPRESSION
     Dosage: 10 MG, QD
     Route: 048
     Dates: start: 201903
  2. COSENTYX [Suspect]
     Active Substance: SECUKINUMAB
     Indication: PSORIATIC ARTHROPATHY
     Dosage: UNK UNK, QMO
     Route: 058
     Dates: start: 201810, end: 201906
  3. PREDNISONA [Suspect]
     Active Substance: PREDNISONE
     Indication: PSORIATIC ARTHROPATHY
     Dosage: 40 MG, QD (APPROXIMATLY 5 YEARS AGO)
     Route: 048
  4. RIVOTRIL [Suspect]
     Active Substance: CLONAZEPAM
     Indication: DEPRESSION
     Dosage: 0.5 MG, UNK
     Route: 048
     Dates: start: 201903
  5. LEFLUNOMIDA [Concomitant]
     Active Substance: LEFLUNOMIDE
     Indication: PSORIATIC ARTHROPATHY
     Dosage: 20 MG, QD (END OF JUN AFTER APPERENCE OF THE LESIONS
     Route: 048
     Dates: start: 201906

REACTIONS (4)
  - Systemic lupus erythematosus [Unknown]
  - Malaise [Unknown]
  - Skin lesion [Recovering/Resolving]
  - Fear [Unknown]

NARRATIVE: CASE EVENT DATE: 201906
